FAERS Safety Report 8023188-2 (Version None)
Quarter: 2012Q1

REPORT INFORMATION
  Report Type: 
  Country: None (occurrence: None)
  Receive Date: 20120104
  Receipt Date: 20111230
  Transmission Date: 20120608
  Serious: Yes (Hospitalization)
  Sender: FDA-Public Use
  Company Number: PHHO2011US021474

PATIENT
  Age: 61 Year
  Sex: Female
  Weight: 79.7 kg

DRUGS (4)
  1. AFINITOR [Suspect]
     Indication: THYROID CANCER
     Dosage: 10 MG, QD
     Route: 048
     Dates: start: 20111203, end: 20111220
  2. LORAZEPAM [Concomitant]
     Dosage: UNK
  3. SIMVASTATIN [Concomitant]
  4. VICODIN [Concomitant]

REACTIONS (9)
  - DEEP VEIN THROMBOSIS [None]
  - THYROID CANCER [None]
  - VOCAL CORD PARESIS [None]
  - NEOPLASM PROGRESSION [None]
  - PLEURAL EFFUSION [None]
  - PYREXIA [None]
  - PULMONARY EMBOLISM [None]
  - BRAIN MASS [None]
  - OEDEMA PERIPHERAL [None]
